FAERS Safety Report 9599690 (Version 1)
Quarter: 2013Q4

REPORT INFORMATION
  Report Type: Spontaneous
  Country: US (occurrence: US)
  Receive Date: 20131004
  Receipt Date: 20131004
  Transmission Date: 20140711
  Serious: No
  Sender: FDA-Public Use
  Company Number: US-AMGEN-USASP2013031021

PATIENT
  Age: 79 Year
  Sex: Male
  Weight: 71.66 kg

DRUGS (9)
  1. ENBREL [Suspect]
     Indication: PRODUCT USED FOR UNKNOWN INDICATION
     Dosage: 50 MG, QWK
     Route: 058
  2. PLAQUENIL                          /00072602/ [Concomitant]
     Dosage: 200 MG, UNK
  3. MULTIVITAMINS, PLAIN [Concomitant]
     Dosage: UNK
  4. LIPITOR [Concomitant]
     Dosage: 80 MG, UNK
  5. VITAMIN D                          /00107901/ [Concomitant]
     Dosage: 2000 UNIT, UNK
  6. VITAMIN E                          /00110501/ [Concomitant]
     Dosage: 600 UNIT, UNK
  7. FOLIC ACID [Concomitant]
     Dosage: UNK
  8. AMLODIPINE [Concomitant]
     Dosage: 10 MG, UNK
  9. TOPROL [Concomitant]
     Dosage: 50 MG, UNK

REACTIONS (2)
  - Injection site reaction [Unknown]
  - Injection site erythema [Unknown]
